FAERS Safety Report 4291158-6 (Version None)
Quarter: 2004Q1

REPORT INFORMATION
  Report Type: 
  Country: None (occurrence: None)
  Receive Date: 20040206
  Receipt Date: 20040206
  Transmission Date: 20041129
  Serious: No
  Sender: FDA-Public Use
  Company Number: None

PATIENT
  Age: 76 Year
  Sex: Male
  Weight: 54 kg

DRUGS (1)
  1. LORAZEPAM [Suspect]
     Dosage: 1 MG PO TID Q 4 H PRN
     Route: 048
     Dates: start: 20030509, end: 20030512

REACTIONS (3)
  - AGGRESSION [None]
  - AGITATION [None]
  - PSYCHOTIC DISORDER [None]
